FAERS Safety Report 4548925-0 (Version None)
Quarter: 2004Q4

REPORT INFORMATION
  Report Type: 
  Country: None (occurrence: None)
  Receive Date: 20041227
  Receipt Date: 20040903
  Transmission Date: 20050328
  Serious: No
  Sender: FDA-Public Use
  Company Number: 04P-163-0272386-00

PATIENT
  Age: 50 Year
  Sex: Male
  Weight: 109 kg

DRUGS (9)
  1. HUMIRA [Suspect]
     Indication: ARTHRITIS
     Dosage: 40 MG, 1 IN 2 WK, SUBCUTANEOUS
     Route: 058
     Dates: start: 20030801, end: 20040101
  2. HUMIRA [Suspect]
     Indication: ARTHRITIS
     Dosage: 40 MG, 1 IN 2 WK, SUBCUTANEOUS
     Route: 058
     Dates: start: 20040101
  3. ASPIRIN [Concomitant]
  4. PANTOPRAZOLE [Concomitant]
  5. LEXAPRO [Concomitant]
  6. METOPROLOL SUCCINATE [Concomitant]
  7. FOLGARD RX [Concomitant]
  8. METHOTREXATE [Concomitant]
  9. ROFECOXIB [Concomitant]

REACTIONS (1)
  - CELLULITIS [None]
